FAERS Safety Report 9892933 (Version 7)
Quarter: 2015Q3

REPORT INFORMATION
  Report Type: Report from Study
  Country: US (occurrence: US)
  Receive Date: 20140213
  Receipt Date: 20150923
  Transmission Date: 20151125
  Serious: Yes (Hospitalization, Other)
  Sender: FDA-Public Use
  Company Number: US-BIOGENIDEC-2014BI012142

PATIENT
  Age: 70 Year
  Sex: Female

DRUGS (18)
  1. TECFIDERA [Suspect]
     Active Substance: DIMETHYL FUMARATE
     Indication: MULTIPLE SCLEROSIS
     Route: 048
     Dates: end: 20131220
  2. OXYCONTIN [Concomitant]
     Active Substance: OXYCODONE HYDROCHLORIDE
  3. TEGRETOL [Concomitant]
     Active Substance: CARBAMAZEPINE
  4. MIRALAX [Concomitant]
     Active Substance: POLYETHYLENE GLYCOL 3350
  5. TECFIDERA [Suspect]
     Active Substance: DIMETHYL FUMARATE
     Indication: MULTIPLE SCLEROSIS
     Route: 048
     Dates: start: 20130428
  6. HYDROCODONE BITARTRATE AND ACETAMINOPHEN [Concomitant]
     Active Substance: ACETAMINOPHEN\HYDROCODONE BITARTRATE
  7. BACLOFEN. [Concomitant]
     Active Substance: BACLOFEN
  8. CALCIUM PLUS VITAMIN D [Concomitant]
     Active Substance: CALCIUM\VITAMIN D
  9. DIAZEPAM. [Concomitant]
     Active Substance: DIAZEPAM
     Route: 048
  10. AMBIEN [Concomitant]
     Active Substance: ZOLPIDEM TARTRATE
  11. SENNA [Concomitant]
     Active Substance: SENNA LEAF\SENNOSIDES\SENNOSIDES A AND B
  12. TECFIDERA [Suspect]
     Active Substance: DIMETHYL FUMARATE
     Indication: MULTIPLE SCLEROSIS
     Route: 048
     Dates: start: 20130903
  13. ACETAMINOPHEN. [Concomitant]
     Active Substance: ACETAMINOPHEN
  14. PROLIA [Concomitant]
     Active Substance: DENOSUMAB
     Indication: OSTEOPOROSIS
     Dates: start: 20131219
  15. ATELVIA [Concomitant]
     Active Substance: RISEDRONATE SODIUM
  16. CITALOPRAM [Concomitant]
     Active Substance: CITALOPRAM HYDROBROMIDE
  17. GABAPENTIN. [Concomitant]
     Active Substance: GABAPENTIN
  18. TAMSULOSIN [Concomitant]
     Active Substance: TAMSULOSIN

REACTIONS (14)
  - Dyspnoea [Unknown]
  - Decubitus ulcer [Unknown]
  - Weight bearing difficulty [Unknown]
  - Multiple sclerosis relapse [Unknown]
  - Skin ulcer [Unknown]
  - Prescribed underdose [Unknown]
  - Asthenia [Unknown]
  - Neurological symptom [Unknown]
  - Lung adenocarcinoma recurrent [Not Recovered/Not Resolved]
  - Urinary incontinence [Unknown]
  - Faecal incontinence [Unknown]
  - Gastrointestinal disorder [Unknown]
  - Cough [Unknown]
  - Lung adenocarcinoma stage I [Recovered/Resolved]

NARRATIVE: CASE EVENT DATE: 201309
